FAERS Safety Report 5567098-9 (Version None)
Quarter: 2007Q4

REPORT INFORMATION
  Report Type: 
  Country: None (occurrence: None)
  Receive Date: 20071130
  Receipt Date: 20070910
  Transmission Date: 20080405
  Serious: No
  Sender: FDA-Public Use
  Company Number: US200709001957

PATIENT
  Age: 65 Year
  Sex: Female
  Weight: 102.9 kg

DRUGS (5)
  1. BYETTA [Suspect]
     Indication: TYPE 2 DIABETES MELLITUS
     Dosage: 5 UG, 2/D, SUBCUTANEOUS
     Route: 058
     Dates: start: 20060401, end: 20060101
  2. BYETTA [Suspect]
     Dosage: 10 UG, 2/D, SUBCUTANEOUS
     Route: 058
     Dates: start: 20060101
  3. EXENATIDE PEN, DISPOSABLE DEVICE (EXENATIDE PEN) PEN,DISPOSABLE [Concomitant]
  4. AVANDAMET [Concomitant]
  5. NAPROXEN [Concomitant]

REACTIONS (3)
  - INJECTION SITE EXTRAVASATION [None]
  - PAIN IN EXTREMITY [None]
  - WEIGHT DECREASED [None]
